FAERS Safety Report 6515726-3 (Version None)
Quarter: 2009Q4

REPORT INFORMATION
  Report Type: 
  Country: None (occurrence: None)
  Receive Date: 20091217
  Receipt Date: 20090323
  Transmission Date: 20100525
  Serious: Yes (Other)
  Sender: FDA-Public Use
  Company Number: 2009RR-22558

PATIENT
  Age: 56 Year
  Sex: Female

DRUGS (3)
  1. FENOFIBRATE [Suspect]
     Indication: HYPERLIPIDAEMIA
     Dosage: 145 MG, QD
  2. AMLODIPINE [Concomitant]
  3. METFORMIN HCL [Concomitant]

REACTIONS (1)
  - HEPATITIS CHOLESTATIC [None]
